FAERS Safety Report 4789556-7 (Version None)
Quarter: 2005Q4

REPORT INFORMATION
  Report Type: 
  Country: None (occurrence: None)
  Receive Date: 20051006
  Receipt Date: 20050926
  Transmission Date: 20060501
  Serious: Yes (Hospitalization, Disabling)
  Sender: FDA-Public Use
  Company Number: US-JNJFOC-20050906643

PATIENT
  Sex: Male
  Weight: 74.39 kg

DRUGS (5)
  1. REMICADE [Suspect]
     Indication: CROHN'S DISEASE
     Route: 042
  2. 5-ASA [Concomitant]
  3. ANTIBIOTICS [Concomitant]
  4. 6-MP [Concomitant]
  5. PREDNISONE [Concomitant]

REACTIONS (1)
  - PARALYSIS [None]
